FAERS Safety Report 5202886-X (Version None)
Quarter: 2006Q4

REPORT INFORMATION
  Report Type: 
  Country: None (occurrence: None)
  Receive Date: 20061016
  Receipt Date: 20060804
  Transmission Date: 20070319
  Serious: No
  Sender: FDA-Public Use
  Company Number: 2006SP002909

PATIENT
  Age: 42 Year
  Sex: Female
  Weight: 74.3899 kg

DRUGS (2)
  1. LUNESTA [Suspect]
     Indication: INSOMNIA
     Dosage: 3MG, HS; ORAL
     Route: 048
  2. LORTAB [Concomitant]

REACTIONS (1)
  - NIGHTMARE [None]
